FAERS Safety Report 21749869 (Version 1)
Quarter: 2022Q4

REPORT INFORMATION
  Report Type: Spontaneous
  Country: DE (occurrence: DE)
  Receive Date: 20221219
  Receipt Date: 20221219
  Transmission Date: 20230112
  Serious: Yes (Life-Threatening, Hospitalization, Other)
  Sender: FDA-Public Use
  Company Number: DE-MYLANLABS-2022M1140400

PATIENT
  Age: 81 Year
  Sex: Female

DRUGS (4)
  1. SIMVASTATIN [Suspect]
     Active Substance: SIMVASTATIN
     Indication: Hypocholesterolaemia
     Dosage: UNK
     Route: 065
  2. TORSEMIDE [Suspect]
     Active Substance: TORSEMIDE
     Indication: Hypocholesterolaemia
     Dosage: UNK
     Route: 065
  3. RAMIPRIL [Suspect]
     Active Substance: RAMIPRIL
     Indication: Hypocholesterolaemia
     Dosage: UNK
     Route: 065
  4. AMBROXOL HYDROCHLORIDE [Suspect]
     Active Substance: AMBROXOL HYDROCHLORIDE
     Indication: Nasopharyngitis
     Dosage: UNK
     Route: 065

REACTIONS (6)
  - Angioedema [Recovering/Resolving]
  - Swollen tongue [Recovering/Resolving]
  - Oral mucosal blistering [Unknown]
  - Respiratory distress [Unknown]
  - Lip swelling [Recovering/Resolving]
  - Off label use [Unknown]
